FAERS Safety Report 16229129 (Version 1)
Quarter: 2019Q2

REPORT INFORMATION
  Report Type: Spontaneous
  Country: GB (occurrence: GB)
  Receive Date: 20190423
  Receipt Date: 20190423
  Transmission Date: 20190711
  Serious: Yes (Hospitalization)
  Sender: FDA-Public Use
  Company Number: GB-PFIZER INC-2019166133

PATIENT
  Age: 39 Year
  Sex: Female
  Weight: 85.15 kg

DRUGS (9)
  1. ADCAL D3 [Concomitant]
     Active Substance: CALCIUM CARBONATE\CHOLECALCIFEROL
  2. METRONIDAZOLE. [Concomitant]
     Active Substance: METRONIDAZOLE
  3. OMEPRAZOLE. [Concomitant]
     Active Substance: OMEPRAZOLE
  4. DULOXETINE. [Concomitant]
     Active Substance: DULOXETINE
  5. DEPO-PROVERA [Suspect]
     Active Substance: MEDROXYPROGESTERONE ACETATE
     Indication: INJECTABLE CONTRACEPTION
     Dosage: 150 MG, SINGLE (STAT)
     Route: 030
     Dates: start: 20190108, end: 20190322
  6. ZOPICLONE [Concomitant]
     Active Substance: ZOPICLONE
  7. USTEKINUMAB [Concomitant]
     Active Substance: USTEKINUMAB
  8. PROPRANOLOL HYDROCHLORIDE. [Concomitant]
     Active Substance: PROPRANOLOL HYDROCHLORIDE
  9. PREDNISOLONE. [Concomitant]
     Active Substance: PREDNISOLONE

REACTIONS (6)
  - Abdominal pain [Unknown]
  - Condition aggravated [Unknown]
  - Diarrhoea [Unknown]
  - Vaginal haemorrhage [Recovering/Resolving]
  - Crohn^s disease [Unknown]
  - Chest pain [Unknown]

NARRATIVE: CASE EVENT DATE: 20190321
